FAERS Safety Report 16091615 (Version 12)
Quarter: 2021Q3

REPORT INFORMATION
  Report Type: Spontaneous
  Country: ES (occurrence: ES)
  Receive Date: 20190319
  Receipt Date: 20210719
  Transmission Date: 20211014
  Serious: Yes (Life-Threatening, Hospitalization, Other)
  Sender: FDA-Public Use
  Company Number: ES-009507513-1903ESP004374

PATIENT
  Age: 74 Year
  Sex: Male

DRUGS (1)
  1. ERTAPENEM SODIUM [Suspect]
     Active Substance: ERTAPENEM SODIUM
     Indication: INFECTED LYMPHOCELE
     Dosage: 500 MILLIGRAM, QD
     Route: 042

REACTIONS (3)
  - Product use issue [Unknown]
  - Encephalopathy [Recovered/Resolved]
  - Myoclonus [Recovered/Resolved]
